FAERS Safety Report 25171599 (Version 1)
Quarter: 2025Q2

REPORT INFORMATION
  Report Type: Spontaneous
  Country: CZ (occurrence: CZ)
  Receive Date: 20250408
  Receipt Date: 20250408
  Transmission Date: 20250716
  Serious: Yes (Death, Hospitalization, Other)
  Sender: EPIC PHARM
  Company Number: CZ-EPICPHARMA-CZ-2025EPCLIT00392

PATIENT
  Age: 30 Year
  Sex: Female

DRUGS (4)
  1. AMPHETAMINE SULFATE [Suspect]
     Active Substance: AMPHETAMINE SULFATE
     Indication: Product used for unknown indication
     Route: 065
  2. FENTANYL [Suspect]
     Active Substance: FENTANYL
     Indication: Product used for unknown indication
     Route: 065
  3. METHAMPHETAMINE [Suspect]
     Active Substance: METHAMPHETAMINE
     Indication: Product used for unknown indication
     Route: 065
  4. METHADONE [Concomitant]
     Active Substance: METHADONE HYDROCHLORIDE
     Route: 065

REACTIONS (13)
  - Hallucination [Fatal]
  - Shock haemorrhagic [Fatal]
  - Loss of consciousness [Fatal]
  - Completed suicide [Fatal]
  - Skull fractured base [Fatal]
  - Skin laceration [Fatal]
  - Pallor [Fatal]
  - Stab wound [Fatal]
  - Aggression [Fatal]
  - Agitation [Fatal]
  - Substance-induced psychotic disorder [Fatal]
  - Toxicity to various agents [Fatal]
  - Drug abuse [Fatal]
